FAERS Safety Report 21281717 (Version 3)
Quarter: 2024Q2

REPORT INFORMATION
  Report Type: Report from Study
  Country: CO (occurrence: CO)
  Receive Date: 20220901
  Receipt Date: 20240417
  Transmission Date: 20240715
  Serious: Yes (Other)
  Sender: FDA-Public Use
  Company Number: CO-ABBVIE-22K-036-4524643-00

PATIENT
  Sex: Male

DRUGS (2)
  1. HUMIRA [Suspect]
     Active Substance: ADALIMUMAB
     Indication: Hidradenitis
     Dosage: HUMIRA AC
     Route: 058
     Dates: end: 20220712
  2. HUMIRA [Suspect]
     Active Substance: ADALIMUMAB

REACTIONS (4)
  - Varicose vein [Recovering/Resolving]
  - Limb discomfort [Recovering/Resolving]
  - Abscess [Recovering/Resolving]
  - Walking disability [Recovering/Resolving]

NARRATIVE: CASE EVENT DATE: 20220101
